FAERS Safety Report 23047520 (Version 4)
Quarter: 2023Q4

REPORT INFORMATION
  Report Type: Report from Study
  Country: CA (occurrence: CA)
  Receive Date: 20231010
  Receipt Date: 20231226
  Transmission Date: 20240110
  Serious: Yes (Other)
  Sender: FDA-Public Use
  Company Number: CA-JNJFOC-20231010509

PATIENT
  Age: 17 Year
  Sex: Male
  Weight: 74 kg

DRUGS (1)
  1. REMICADE [Suspect]
     Active Substance: INFLIXIMAB
     Indication: Colitis ulcerative
     Dosage: INFUSION DATE- 04-OCT-2023?EXPIRY DATE- 01-MAR-2026
     Route: 041

REACTIONS (2)
  - Appendicitis [Recovered/Resolved]
  - Abdominal pain [Recovered/Resolved]

NARRATIVE: CASE EVENT DATE: 20230923
